FAERS Safety Report 9272056 (Version 1)
Quarter: 2013Q2

REPORT INFORMATION
  Report Type: Spontaneous
  Country: FR (occurrence: FR)
  Receive Date: 20130506
  Receipt Date: 20130506
  Transmission Date: 20140414
  Serious: Yes (Other)
  Sender: FDA-Public Use
  Company Number: FR-UCBSA-085047

PATIENT
  Sex: Female

DRUGS (3)
  1. VIMPAT [Suspect]
     Route: 048
     Dates: start: 201205, end: 20130429
  2. TRILEPTAL [Concomitant]
     Route: 048
  3. URBANYL [Concomitant]
     Route: 048

REACTIONS (2)
  - Face oedema [Unknown]
  - Tremor [Unknown]
